FAERS Safety Report 10675893 (Version 5)
Quarter: 2015Q2

REPORT INFORMATION
  Report Type: Report from Study
  Country: US (occurrence: US)
  Receive Date: 20141225
  Receipt Date: 20150420
  Transmission Date: 20150821
  Serious: Yes (Hospitalization, Other)
  Sender: FDA-Public Use
  Company Number: US-BIOGENIDEC-2014BI135372

PATIENT
  Age: 64 Year
  Sex: Female
  Weight: 90 kg

DRUGS (2)
  1. TECFIDERA [Suspect]
     Active Substance: DIMETHYL FUMARATE
     Indication: MULTIPLE SCLEROSIS
     Route: 048
     Dates: start: 20141115, end: 20141123
  2. TECFIDERA [Suspect]
     Active Substance: DIMETHYL FUMARATE
     Indication: MULTIPLE SCLEROSIS
     Route: 048
     Dates: start: 20141109

REACTIONS (10)
  - Dysphagia [Unknown]
  - Multiple sclerosis [Not Recovered/Not Resolved]
  - Blindness unilateral [Unknown]
  - Vomiting [Unknown]
  - Seizure [Unknown]
  - Diplopia [Unknown]
  - Subarachnoid haemorrhage [Recovered/Resolved]
  - Cardiac arrest [Unknown]
  - Paraplegia [Unknown]
  - Headache [Unknown]

NARRATIVE: CASE EVENT DATE: 201411
